FAERS Safety Report 6053857-5 (Version None)
Quarter: 2009Q1

REPORT INFORMATION
  Report Type: 
  Country: None (occurrence: None)
  Receive Date: 20090123
  Receipt Date: 20081106
  Transmission Date: 20090719
  Serious: Yes (Other)
  Sender: FDA-Public Use
  Company Number: 44918

PATIENT
  Age: 53 Year
  Sex: Female
  Weight: 65.7716 kg

DRUGS (1)
  1. WELLPATCH CAPSAICIN PAIN RELEIVING PATCH (0.025%) [Suspect]
     Indication: PAIN
     Dosage: 1 PAD/DAY/2 DAYS TOPICA
     Route: 061
     Dates: start: 20081030, end: 20081031

REACTIONS (2)
  - PRURITUS [None]
  - RASH [None]
